FAERS Safety Report 5662031-3 (Version None)
Quarter: 2008Q1

REPORT INFORMATION
  Report Type: 
  Country: None (occurrence: None)
  Receive Date: 20080312
  Receipt Date: 20080304
  Transmission Date: 20080703
  Serious: Yes (Hospitalization, Other)
  Sender: FDA-Public Use
  Company Number: US-AVENTIS-200718366US

PATIENT
  Sex: Male
  Weight: 80 kg

DRUGS (12)
  1. TAXOTERE [Suspect]
     Dosage: DOSE: 50 MG WEEKLY
     Dates: start: 20070802, end: 20070918
  2. TAXOTERE [Suspect]
     Dates: start: 20070904, end: 20070904
  3. TAXOTERE [Suspect]
     Dates: start: 20070912, end: 20070912
  4. TAXOTERE [Suspect]
     Dates: start: 20070913, end: 20070913
  5. TAXOTERE [Suspect]
     Dates: start: 20070918, end: 20070918
  6. PROSCAR [Concomitant]
  7. OCUVITE                            /01053801/ [Concomitant]
     Dosage: DOSE QUANTITY: 1
  8. ASPIRIN [Concomitant]
  9. FLOMAX [Concomitant]
     Dates: end: 20061231
  10. NAMENDA [Concomitant]
  11. EXELON                             /01383202/ [Concomitant]
     Dates: end: 20061231
  12. ADVAIR DISKUS 100/50 [Concomitant]
     Dosage: DOSE: 100/50

REACTIONS (8)
  - ASTHENIA [None]
  - BALANCE DISORDER [None]
  - DIZZINESS [None]
  - FALL [None]
  - MEMORY IMPAIRMENT [None]
  - ORTHOSTATIC HYPOTENSION [None]
  - PNEUMONIA [None]
  - SUBDURAL HAEMATOMA [None]
